FAERS Safety Report 15837061 (Version 1)
Quarter: 2018Q4

REPORT INFORMATION
  Report Type: Spontaneous
  Country: US (occurrence: US)
  Receive Date: 20181221
  Receipt Date: 20181221
  Transmission Date: 20190205
  Serious: No
  Sender: FDA-Public Use
  Company Number: None

PATIENT
  Age: 73 Year
  Sex: Female

DRUGS (3)
  1. CAPECITABINE TAB 500MG [Suspect]
     Active Substance: CAPECITABINE
     Dosage: OTHER DOSE:1500 MG AM AND 1000 MG?
     Route: 048
     Dates: start: 20180928
  2. CAPECITABINE TAB 500MG [Suspect]
     Active Substance: CAPECITABINE
     Dosage: ?          OTHER DOSE:1000 MG PM;?
  3. ADVAIR HFA [Suspect]
     Active Substance: FLUTICASONE PROPIONATE\SALMETEROL XINAFOATE

REACTIONS (2)
  - Tumour marker increased [None]
  - Drug intolerance [None]

NARRATIVE: CASE EVENT DATE: 20181213
